FAERS Safety Report 22535462 (Version 2)
Quarter: 2023Q2

REPORT INFORMATION
  Report Type: Spontaneous
  Country: US (occurrence: US)
  Receive Date: 20230608
  Receipt Date: 20230609
  Transmission Date: 20230722
  Serious: No
  Sender: FDA-Public Use
  Company Number: US-AMGEN-USASP2023098991

PATIENT
  Age: 82 Year
  Sex: Female

DRUGS (1)
  1. AMJEVITA [Suspect]
     Active Substance: ADALIMUMAB-ATTO
     Indication: Colitis
     Dosage: 40 MILLIGRAM/ 0.8 ML, UNK
     Route: 065

REACTIONS (2)
  - Device difficult to use [Unknown]
  - Arthritis [Unknown]

NARRATIVE: CASE EVENT DATE: 20230603
